FAERS Safety Report 13735777 (Version 1)
Quarter: 2017Q3

REPORT INFORMATION
  Report Type: Spontaneous
  Country: US (occurrence: US)
  Receive Date: 20170708
  Receipt Date: 20170708
  Transmission Date: 20171127
  Serious: Yes (Disabling, Other)
  Sender: FDA-Public Use
  Company Number: None

PATIENT
  Age: 62 Year
  Sex: Male
  Weight: 94.5 kg

DRUGS (2)
  1. ALPRAZOLAM. [Suspect]
     Active Substance: ALPRAZOLAM
     Indication: PANIC REACTION
     Dosage: ?          OTHER STRENGTH:MG;QUANTITY:60 TABLET(S);?
     Route: 048
  2. ALPRAZOLAM. [Suspect]
     Active Substance: ALPRAZOLAM
     Indication: INSOMNIA
     Dosage: ?          OTHER STRENGTH:MG;QUANTITY:60 TABLET(S);?
     Route: 048

REACTIONS (13)
  - Hypoaesthesia [None]
  - Fatigue [None]
  - Insomnia [None]
  - Irritable bowel syndrome [None]
  - Palpitations [None]
  - Myoclonus [None]
  - Withdrawal syndrome [None]
  - Amnesia [None]
  - Migraine [None]
  - Tremor [None]
  - Anxiety [None]
  - Tinnitus [None]
  - Weight decreased [None]

NARRATIVE: CASE EVENT DATE: 20161121
